FAERS Safety Report 18119100 (Version 1)
Quarter: 2020Q3

REPORT INFORMATION
  Report Type: Report from Study
  Country: US (occurrence: US)
  Receive Date: 20200806
  Receipt Date: 20200806
  Transmission Date: 20201103
  Serious: Yes (Life-Threatening, Other)
  Sender: FDA-Public Use
  Company Number: US-GLAXOSMITHKLINE-US2020TSO011145

PATIENT
  Sex: Female
  Weight: 74.38 kg

DRUGS (4)
  1. NIRAPARIB [Suspect]
     Active Substance: NIRAPARIB
     Indication: GALLBLADDER CANCER
     Dosage: 300 MG, QD
     Route: 048
     Dates: start: 20200121
  2. NIRAPARIB [Suspect]
     Active Substance: NIRAPARIB
     Dosage: 200 MG, QD
     Dates: start: 202006
  3. NIRAPARIB [Suspect]
     Active Substance: NIRAPARIB
     Dosage: 100 MG, QD
     Route: 048
     Dates: start: 20200515
  4. NIRAPARIB [Suspect]
     Active Substance: NIRAPARIB
     Indication: METASTASES TO LIVER
     Dosage: 300 MG, QD
     Route: 048

REACTIONS (16)
  - Dyspnoea [Unknown]
  - Asthenia [Recovered/Resolved]
  - Hypoaesthesia [Unknown]
  - Dyspnoea exertional [Unknown]
  - Blood pressure decreased [Unknown]
  - Malaise [Unknown]
  - Fatigue [Not Recovered/Not Resolved]
  - Anaemia [Unknown]
  - Hospice care [Unknown]
  - Red blood cell count decreased [Unknown]
  - Dizziness [Not Recovered/Not Resolved]
  - Condition aggravated [Unknown]
  - Terminal state [Unknown]
  - Haemoglobin decreased [Unknown]
  - Off label use [Unknown]
  - Product use in unapproved indication [Unknown]
